FAERS Safety Report 20583405 (Version 1)
Quarter: 2022Q1

REPORT INFORMATION
  Report Type: Spontaneous
  Country: US (occurrence: US)
  Receive Date: 20220311
  Receipt Date: 20220311
  Transmission Date: 20220424
  Serious: Yes (Other)
  Sender: FDA-Public Use
  Company Number: US-FOUNDATIONCONSUMERHC-2022-US-002104

PATIENT
  Age: 32 Year
  Sex: Female
  Weight: 104.33 kg

DRUGS (2)
  1. PLAN B ONE-STEP [Suspect]
     Active Substance: LEVONORGESTREL
     Indication: Post coital contraception
     Dosage: 1.5 MG X 1 DOSE
     Route: 048
     Dates: start: 20220101, end: 20220101
  2. MINIPRESS [Concomitant]
     Active Substance: PRAZOSIN HYDROCHLORIDE

REACTIONS (2)
  - Drug ineffective [Recovered/Resolved]
  - Pregnancy after post coital contraception [Not Recovered/Not Resolved]

NARRATIVE: CASE EVENT DATE: 20220101
